FAERS Safety Report 4556195-2 (Version None)
Quarter: 2005Q1

REPORT INFORMATION
  Report Type: 
  Country: None (occurrence: None)
  Receive Date: 20050103
  Receipt Date: 20040902
  Transmission Date: 20050727
  Serious: Yes (Hospitalization)
  Sender: FDA-Public Use
  Company Number: 2004UW18810

PATIENT
  Sex: Female

DRUGS (11)
  1. CRESTOR [Suspect]
     Dosage: 10 MG DAILY PO
     Route: 048
  2. CELLCEPT [Concomitant]
  3. BIAXIN [Concomitant]
  4. PROTONIX [Concomitant]
  5. NORVASC [Concomitant]
  6. METOPROLOL [Concomitant]
  7. CALCIUM CARBONATE [Concomitant]
  8. POTASSIUM PHOSPHATES [Concomitant]
  9. HUMALOG [Concomitant]
  10. LANTUS [Concomitant]
  11. PREDNISONE [Concomitant]

REACTIONS (2)
  - MYALGIA [None]
  - PANCREATITIS [None]
